FAERS Safety Report 12854355 (Version 1)
Quarter: 2016Q4

REPORT INFORMATION
  Report Type: Spontaneous
  Country: US (occurrence: US)
  Receive Date: 20161017
  Receipt Date: 20161017
  Transmission Date: 20170207
  Serious: Yes (Disabling)
  Sender: FDA-Public Use
  Company Number: US-STANDARD HOMEOPATHIC COMPANY-1058425

PATIENT
  Age: 29 Month
  Sex: Female
  Weight: 11.82 kg

DRUGS (1)
  1. BABY TEETHING (HYLAND HOMEOPATHIC) [Suspect]
     Active Substance: HOMEOPATHICS
     Indication: TEETHING
     Route: 048
     Dates: start: 201409, end: 201412

REACTIONS (2)
  - Inability to crawl [None]
  - Hypotonia [None]

NARRATIVE: CASE EVENT DATE: 201412
